FAERS Safety Report 5840362-1 (Version None)
Quarter: 2008Q3

REPORT INFORMATION
  Report Type: 
  Country: None (occurrence: None)
  Receive Date: 20080811
  Receipt Date: 20080728
  Transmission Date: 20090109
  Serious: Yes (Disabling)
  Sender: FDA-Public Use
  Company Number: US-MERCK-0805USA00807

PATIENT
  Age: 59 Year
  Sex: Female

DRUGS (3)
  1. VYTORIN [Suspect]
     Indication: HYPERLIPIDAEMIA
     Route: 048
     Dates: start: 20060901
  2. VYTORIN [Suspect]
     Route: 048
     Dates: start: 20080430
  3. LOTREL [Concomitant]
     Route: 065

REACTIONS (12)
  - ACCIDENTAL OVERDOSE [None]
  - ANOREXIA [None]
  - ASTHENIA [None]
  - CHILLS [None]
  - DIARRHOEA [None]
  - DIZZINESS [None]
  - FEELING JITTERY [None]
  - IMPAIRED WORK ABILITY [None]
  - INFLUENZA LIKE ILLNESS [None]
  - NAUSEA [None]
  - STOMACH DISCOMFORT [None]
  - TREMOR [None]
